FAERS Safety Report 7004007-X (Version None)
Quarter: 2010Q3

REPORT INFORMATION
  Report Type: 
  Country: None (occurrence: None)
  Receive Date: 20100920
  Receipt Date: 20100125
  Transmission Date: 20110219
  Serious: No
  Sender: FDA-Public Use
  Company Number: US-WYE-H13143710

PATIENT
  Sex: Male
  Weight: 133.93 kg

DRUGS (5)
  1. PRISTIQ [Suspect]
     Indication: DEPRESSION
     Route: 048
     Dates: start: 20100118
  2. FLEXERIL [Concomitant]
  3. ATIVAN [Concomitant]
  4. NEXIUM [Concomitant]
  5. NORVASC [Concomitant]

REACTIONS (1)
  - MEDICATION RESIDUE [None]
